FAERS Safety Report 7794587-9 (Version None)
Quarter: 2011Q4

REPORT INFORMATION
  Report Type: 
  Country: None (occurrence: None)
  Receive Date: 20111004
  Receipt Date: 20110921
  Transmission Date: 20120403
  Serious: Yes (Hospitalization, Other)
  Sender: FDA-Public Use
  Company Number: CA-ELI_LILLY_AND_COMPANY-CA201109006363

PATIENT
  Age: 80 Year
  Sex: Male

DRUGS (3)
  1. FORTEO [Suspect]
     Indication: OSTEOPOROSIS
     Dosage: 20 UG, QD
     Route: 058
     Dates: start: 20101222, end: 20110801
  2. ANTIHYPERTENSIVES [Concomitant]
     Indication: HYPERTENSION
  3. ANALGESICS [Concomitant]
     Indication: PAIN

REACTIONS (2)
  - HIP FRACTURE [None]
  - FALL [None]
